FAERS Safety Report 18130024 (Version 1)
Quarter: 2020Q3

REPORT INFORMATION
  Report Type: Spontaneous
  Country: GB (occurrence: GB)
  Receive Date: 20200810
  Receipt Date: 20200810
  Transmission Date: 20201103
  Serious: Yes (Hospitalization)
  Sender: FDA-Public Use
  Company Number: GB-ACCORD-193932

PATIENT
  Age: 93 Year
  Sex: Female
  Weight: 51 kg

DRUGS (10)
  1. FULTIUM?D3 [Concomitant]
     Active Substance: CHOLECALCIFEROL
     Dates: start: 20191023
  2. DONEPEZIL. [Suspect]
     Active Substance: DONEPEZIL
     Indication: PRODUCT USED FOR UNKNOWN INDICATION
     Dosage: AT NIGHT
     Dates: start: 20191023
  3. ACETYLSALICYLIC ACID [Concomitant]
     Active Substance: ASPIRIN
     Dates: start: 20191023
  4. FENBID [Concomitant]
     Active Substance: IBUPROFEN
     Indication: PAIN
     Dosage: APPLY TO PAINFUL AREAS
     Dates: start: 20191023
  5. CODEINE [Concomitant]
     Active Substance: CODEINE
     Dates: start: 20200622, end: 20200706
  6. CHLORAMPHENICOL [Concomitant]
     Active Substance: CHLORAMPHENICOL
     Indication: CONJUNCTIVITIS
     Dosage: (1ST LINE): INITIALLY PUT ONE DR...
     Dates: start: 20200504, end: 20200511
  7. BISOPROLOL [Concomitant]
     Active Substance: BISOPROLOL
     Dates: start: 20200715
  8. ATENOLOL. [Concomitant]
     Active Substance: ATENOLOL
     Dates: start: 20191023, end: 20200715
  9. LIGHT LIQUID PARAFFIN/WHITE SOFT PARAFFIN [Concomitant]
     Dosage: USE TWICE A DAY AND WHEN REQUIRED AS A SKIN MOI.??EMOLLIENT CREAM
     Dates: start: 20191023
  10. PARACETAMOL [Concomitant]
     Active Substance: ACETAMINOPHEN
     Dosage: TAKE TWO IN THE MORNING AND 2 AT NIGHT WHEN NEE...
     Dates: start: 20200327

REACTIONS (2)
  - Tachycardia [Recovered/Resolved]
  - Bradycardia [Recovered/Resolved]

NARRATIVE: CASE EVENT DATE: 20200715
